FAERS Safety Report 7347848-1 (Version None)
Quarter: 2011Q1

REPORT INFORMATION
  Report Type: 
  Country: None (occurrence: None)
  Receive Date: 20110311
  Receipt Date: 20110302
  Transmission Date: 20110831
  Serious: Yes (Hospitalization)
  Sender: FDA-Public Use
  Company Number: JP-JNJFOC-20101205941

PATIENT
  Sex: Female
  Weight: 42 kg

DRUGS (5)
  1. RHEUMATREX [Suspect]
     Route: 048
  2. REMICADE [Suspect]
     Route: 042
  3. RHEUMATREX [Suspect]
     Indication: RHEUMATOID ARTHRITIS
     Route: 048
  4. REMICADE [Suspect]
     Indication: RHEUMATOID ARTHRITIS
     Route: 042
  5. RHEUMATREX [Suspect]
     Route: 048

REACTIONS (3)
  - MALAISE [None]
  - PHARYNGEAL ERYTHEMA [None]
  - PYREXIA [None]
